FAERS Safety Report 17093683 (Version 1)
Quarter: 2019Q4

REPORT INFORMATION
  Report Type: Spontaneous
  Country: CN (occurrence: CN)
  Receive Date: 20191129
  Receipt Date: 20191129
  Transmission Date: 20200122
  Serious: Yes (Hospitalization, Other)
  Sender: FDA-Public Use
  Company Number: CN-BAXTER-2019BAX024036

PATIENT
  Age: 59 Year
  Sex: Female
  Weight: 56 kg

DRUGS (4)
  1. STERILE WATER FOR INJECTION [Suspect]
     Active Substance: WATER
     Indication: MEDICATION DILUTION
     Dosage: DOXORUBICIN HYDROCHLORIDE 94 MG+ STERILE WATER FOR INJECTION 47 ML
     Route: 040
     Dates: start: 20190926, end: 20190926
  2. DOXORUBICIN HYDROCHLORIDE. [Suspect]
     Active Substance: DOXORUBICIN HYDROCHLORIDE
     Indication: BREAST CANCER
     Dosage: DOXORUBICIN HYDROCHLORIDE 94 MG+ STERILE WATER FOR INJECTION 47 ML
     Route: 040
     Dates: start: 20190926, end: 20190926
  3. ENDOXAN [Suspect]
     Active Substance: CYCLOPHOSPHAMIDE
     Indication: BREAST CANCER
     Dosage: ENDOXAN 0.942 G + 100 ML NS
     Route: 041
     Dates: start: 20190926, end: 20190926
  4. 0.9% SODIUM CHLORIDE INJECTION [Suspect]
     Active Substance: SODIUM CHLORIDE
     Indication: MEDICATION DILUTION
     Dosage: ENDOXAN 0.942 G + 100 ML NS
     Route: 041
     Dates: start: 20190926, end: 20190926

REACTIONS (4)
  - Haematuria [Recovered/Resolved]
  - Back pain [Unknown]
  - Nephrolithiasis [Unknown]
  - Cystitis [Unknown]

NARRATIVE: CASE EVENT DATE: 20190930
